FAERS Safety Report 6746258-5 (Version None)
Quarter: 2010Q2

REPORT INFORMATION
  Report Type: 
  Country: None (occurrence: None)
  Receive Date: 20100528
  Receipt Date: 20091021
  Transmission Date: 20101027
  Serious: No
  Sender: FDA-Public Use
  Company Number: US-ASTRAZENECA-2009SE21590

PATIENT
  Age: 65 Year
  Sex: Male

DRUGS (1)
  1. PRILOSEC [Suspect]
     Route: 065

REACTIONS (5)
  - DYSPEPSIA [None]
  - DYSPHONIA [None]
  - GASTRITIS [None]
  - OROPHARYNGEAL PAIN [None]
  - WEIGHT DECREASED [None]
